FAERS Safety Report 8214273-0 (Version None)
Quarter: 2012Q1

REPORT INFORMATION
  Report Type: 
  Country: None (occurrence: None)
  Receive Date: 20120316
  Receipt Date: 20120306
  Transmission Date: 20120608
  Serious: Yes (Hospitalization, Other)
  Sender: FDA-Public Use
  Company Number: US-BAYER-2011-032401

PATIENT
  Age: 39 Year
  Sex: Female
  Weight: 113 kg

DRUGS (10)
  1. METFORMIN HCL [Concomitant]
     Indication: POLYCYSTIC OVARIES
     Dosage: 500 MG, UNK
     Dates: start: 20090506, end: 20090526
  2. YAZ [Suspect]
     Indication: DYSMENORRHOEA
  3. HYDROCHLOROTHIAZIDE [Concomitant]
     Indication: FLUID RETENTION
     Dosage: 25 MG/24HR, UNK
     Dates: start: 20090506, end: 20090526
  4. YASMIN [Suspect]
     Indication: MENSTRUATION IRREGULAR
  5. DROSPIRENONE AND ETHINYL ESTRADIOL [Suspect]
     Indication: POLYCYSTIC OVARIES
     Dosage: UNK
     Route: 048
     Dates: start: 20081020, end: 20090526
  6. LEVOTHYROXINE SODIUM [Concomitant]
     Indication: HYPOTHYROIDISM
     Dosage: 100 MCG/24HR, UNK
     Dates: start: 20090506, end: 20090526
  7. PHENTERMINE [Suspect]
     Dosage: UNK
     Dates: start: 20080422
  8. YASMIN [Suspect]
     Indication: CONTRACEPTION
     Dosage: UNK
     Route: 048
     Dates: start: 20011101, end: 20071001
  9. YAZ [Suspect]
     Indication: MENORRHAGIA
     Dosage: UNK
     Route: 048
     Dates: start: 20071115, end: 20081001
  10. LEVOTHYROXINE SODIUM [Concomitant]
     Dosage: 112 MCG/24HR, UNK
     Dates: start: 20090515

REACTIONS (15)
  - EMOTIONAL DISTRESS [None]
  - ANXIETY [None]
  - BRADYPHRENIA [None]
  - CEREBROVASCULAR ACCIDENT [None]
  - MOBILITY DECREASED [None]
  - MEMORY IMPAIRMENT [None]
  - NERVOUSNESS [None]
  - APHASIA [None]
  - FEAR [None]
  - PAIN [None]
  - HYPOAESTHESIA [None]
  - CONFUSIONAL STATE [None]
  - DYSLALIA [None]
  - INJURY [None]
  - GENERAL PHYSICAL HEALTH DETERIORATION [None]
